FAERS Safety Report 6034954-7 (Version None)
Quarter: 2009Q1

REPORT INFORMATION
  Report Type: 
  Country: None (occurrence: None)
  Receive Date: 20090112
  Receipt Date: 20030620
  Transmission Date: 20090719
  Serious: No
  Sender: FDA-Public Use
  Company Number: US-ABBOTT-08P-163-0468185-00

PATIENT
  Age: 70 Year
  Sex: Male

DRUGS (1)
  1. HYTRIN [Suspect]
     Indication: DRUG USE FOR UNKNOWN INDICATION

REACTIONS (4)
  - EYELID OEDEMA [None]
  - LIP SWELLING [None]
  - SWELLING FACE [None]
  - URTICARIA [None]
